FAERS Safety Report 7956486-9 (Version None)
Quarter: 2011Q4

REPORT INFORMATION
  Report Type: 
  Country: None (occurrence: None)
  Receive Date: 20111201
  Receipt Date: 20111115
  Transmission Date: 20120403
  Serious: Yes (Other)
  Sender: FDA-Public Use
  Company Number: 2011AP002716

PATIENT
  Age: 62 Year
  Sex: Female

DRUGS (4)
  1. LIPITOR [Suspect]
     Indication: HYPERCHOLESTEROLAEMIA
     Dosage: 10 MG;PO;QD
     Route: 048
     Dates: start: 20110927, end: 20111004
  2. ENALAPRIL MALEATE [Concomitant]
  3. LOVASTATIN [Suspect]
     Dosage: 10 MG
  4. PRAVASTATIN [Suspect]
     Dosage: 1 DF;QD

REACTIONS (4)
  - GENERALISED ERYTHEMA [None]
  - PARAESTHESIA ORAL [None]
  - FEELING HOT [None]
  - ERYTHEMA [None]
